FAERS Safety Report 17959937 (Version 1)
Quarter: 2020Q2

REPORT INFORMATION
  Report Type: Spontaneous
  Country: AT (occurrence: AT)
  Receive Date: 20200630
  Receipt Date: 20200630
  Transmission Date: 20200714
  Serious: Yes (Other)
  Sender: FDA-Public Use
  Company Number: AT-ASTRAZENECA-2020SE81353

PATIENT
  Age: 48 Year
  Sex: Male

DRUGS (6)
  1. APREDNISLON [Concomitant]
     Active Substance: PREDNISOLONE
  2. MEPOLIZUMAB [Concomitant]
     Active Substance: MEPOLIZUMAB
  3. SYMBICORT [Suspect]
     Active Substance: BUDESONIDE\FORMOTEROL FUMARATE DIHYDRATE
     Indication: ASTHMA
     Route: 055
  4. SPIRIVA [Concomitant]
     Active Substance: TIOTROPIUM BROMIDE MONOHYDRATE
  5. MONTELUKAST [Concomitant]
     Active Substance: MONTELUKAST SODIUM
  6. XOLAIR [Concomitant]
     Active Substance: OMALIZUMAB
     Dosage: EVERY 2 WEEKS
     Dates: start: 201410

REACTIONS (1)
  - Asthma [Unknown]
